FAERS Safety Report 12370867 (Version 1)
Quarter: 2016Q2

REPORT INFORMATION
  Report Type: Spontaneous
  Country: JP (occurrence: JP)
  Receive Date: 20160516
  Receipt Date: 20160516
  Transmission Date: 20160815
  Serious: Yes (Death, Other)
  Sender: FDA-Public Use
  Company Number: JP-CIPLA LTD.-2016JP04885

PATIENT

DRUGS (4)
  1. PACLITAXEL. [Suspect]
     Active Substance: PACLITAXEL
     Indication: CERVIX CARCINOMA
     Dosage: 35 MG/M2, AS A 60-MIN CONTINUOUS INFUSION ONCE A WEEK
  2. PACLITAXEL. [Suspect]
     Active Substance: PACLITAXEL
     Dosage: 175 MG/M2, OVER 3 H, EVERY 3-4 WEEKS
  3. CARBOPLATIN. [Suspect]
     Active Substance: CARBOPLATIN
     Indication: CERVIX CARCINOMA
     Dosage: AUC 2, AS A 30-MIN INFUSION AFTER THE PACLITAXEL ONCE A WEEK
  4. CARBOPLATIN. [Suspect]
     Active Substance: CARBOPLATIN
     Dosage: AUC 5, 30 MIN AFTER THE PACLITAXEL EVERY 3-4 WEEKS

REACTIONS (2)
  - Disease recurrence [Unknown]
  - Disease progression [Fatal]
